FAERS Safety Report 7523445-X (Version None)
Quarter: 2011Q2

REPORT INFORMATION
  Report Type: 
  Country: None (occurrence: None)
  Receive Date: 20110603
  Receipt Date: 20110105
  Transmission Date: 20111010
  Serious: Yes (Hospitalization, Other)
  Sender: FDA-Public Use
  Company Number: US-BAYER-201035801NA

PATIENT
  Age: 35 Year
  Sex: Female
  Weight: 71.202 kg

DRUGS (11)
  1. MUCINEX [Concomitant]
  2. PLAQUENIL [Concomitant]
     Indication: LUPUS-LIKE SYNDROME
     Dosage: UNK
     Dates: start: 20080101
  3. YAZ [Suspect]
     Indication: ACNE
  4. CIPRO [Concomitant]
  5. LEVOTHYROXINE SODIUM [Concomitant]
  6. ZITHROMAX [Concomitant]
  7. SYNTHROID [Concomitant]
     Indication: HYPOTHYROIDISM
     Dosage: UNK
     Dates: start: 20030101
  8. CHANTIX [Concomitant]
  9. DARVOCET-N 50 [Concomitant]
  10. WARFARIN SODIUM [Concomitant]
     Dosage: UNK
     Dates: start: 20070501
  11. COMBIVENT [Concomitant]

REACTIONS (3)
  - PULMONARY EMBOLISM [None]
  - PULMONARY THROMBOSIS [None]
  - INJURY [None]
